FAERS Safety Report 12133284 (Version 1)
Quarter: 2016Q1

REPORT INFORMATION
  Report Type: Spontaneous
  Country: US (occurrence: None)
  Receive Date: 20160229
  Receipt Date: 20160229
  Transmission Date: 20160526
  Serious: Yes (Life-Threatening, Hospitalization)
  Sender: FDA-Public Use
  Company Number: None

PATIENT
  Age: 56 Year
  Sex: Female
  Weight: 47.17 kg

DRUGS (14)
  1. LORATADINE (CLARITIN) [Concomitant]
  2. VALACYCLOVIR (VALTREX) [Concomitant]
  3. METOPROLOL TARTRATE. [Concomitant]
     Active Substance: METOPROLOL TARTRATE
  4. PROBIOTIC [Concomitant]
     Active Substance: PROBIOTICS NOS
  5. KYPROLIS [Suspect]
     Active Substance: CARFILZOMIB
     Indication: PLASMA CELL MYELOMA
     Dosage: 54 MG/M2 X 1.45 M2 WEEKLY INTO A VEIN
     Route: 042
     Dates: start: 20160126, end: 20160208
  6. VITAMIN D [Concomitant]
     Active Substance: CHOLECALCIFEROL
  7. LORAZEPAM (ATIVAN) [Concomitant]
  8. FLUCONAZOLE. [Concomitant]
     Active Substance: FLUCONAZOLE
  9. FA-PYRIDOXINE-CYANCOBALAMIN [Concomitant]
  10. ERGOCALCIFEROL. [Concomitant]
     Active Substance: ERGOCALCIFEROL
  11. ATOVAQUONE. [Concomitant]
     Active Substance: ATOVAQUONE
  12. KYPROLIS [Suspect]
     Active Substance: CARFILZOMIB
     Indication: STEM CELL TRANSPLANT
     Dosage: 54 MG/M2 X 1.45 M2 WEEKLY INTO A VEIN
     Route: 042
     Dates: start: 20160126, end: 20160208
  13. PANTOPRAZOLE SODIUM (PROTONIX) [Concomitant]
  14. CITALOPRAM HYDROBROMIDE (CELEXA) [Concomitant]

REACTIONS (3)
  - Oxygen saturation decreased [None]
  - Myocardial oedema [None]
  - Pulmonary oedema [None]

NARRATIVE: CASE EVENT DATE: 20160209
